FAERS Safety Report 9188051 (Version 1)
Quarter: 2013Q1

REPORT INFORMATION
  Report Type: Spontaneous
  Country: US (occurrence: US)
  Receive Date: 20130325
  Receipt Date: 20130325
  Transmission Date: 20140127
  Serious: No
  Sender: FDA-Public Use
  Company Number: US-MYLANLABS-2013S1000702

PATIENT
  Age: 47 Year
  Sex: Male

DRUGS (6)
  1. FENTANYL TRANSDERMAL SYSTEM [Suspect]
     Indication: ARTHRALGIA
     Dosage: Q72H
     Route: 062
  2. FENTANYL TRANSDERMAL SYSTEM [Suspect]
     Indication: BACK PAIN
     Dosage: Q72H
     Route: 062
  3. ACETAMINOPHEN [Concomitant]
     Indication: HEADACHE
  4. COUMADIN [Concomitant]
     Indication: THROMBOSIS
  5. ALBUTEROL SULFATE [Concomitant]
     Indication: ASTHMA
     Route: 055
  6. IBUPROFEN [Concomitant]
     Indication: HEADACHE

REACTIONS (1)
  - Drug screen false positive [Not Recovered/Not Resolved]
